FAERS Safety Report 17895628 (Version 1)
Quarter: 2020Q2

REPORT INFORMATION
  Report Type: Spontaneous
  Country: CH (occurrence: CH)
  Receive Date: 20200615
  Receipt Date: 20200615
  Transmission Date: 20200714
  Serious: Yes (Other)
  Sender: FDA-Public Use
  Company Number: CH-PFIZER INC-2020227127

PATIENT
  Age: 71 Year
  Sex: Male
  Weight: 82 kg

DRUGS (14)
  1. SOLU-CORTEF [Suspect]
     Active Substance: HYDROCORTISONE SODIUM SUCCINATE
     Dosage: 50 MG, 2X/DAY
     Route: 042
     Dates: start: 20200225
  2. ATORVASTATIN CALCIUM. [Suspect]
     Active Substance: ATORVASTATIN CALCIUM
     Dosage: 40 MG, 1X/DAY
     Route: 048
     Dates: end: 20200224
  3. LASIX [Concomitant]
     Active Substance: FUROSEMIDE
     Dosage: 40 MG CHANGING DOSAGE
     Route: 042
  4. PLAVIX [Concomitant]
     Active Substance: CLOPIDOGREL BISULFATE
     Dosage: 75 MG, 1X/DAY
     Route: 048
     Dates: end: 20200224
  5. CORDARONE [Suspect]
     Active Substance: AMIODARONE HYDROCHLORIDE
     Dosage: 200 MG, 1X/DAY
     Route: 048
     Dates: start: 20200222, end: 20200222
  6. ESOMEP [ESOMEPRAZOLE] [Suspect]
     Active Substance: ESOMEPRAZOLE
     Dosage: 40 MG, 1-0-0-0
     Route: 048
  7. CANCIDAS [Suspect]
     Active Substance: CASPOFUNGIN ACETATE
     Dosage: SUBSEQUENTLY 50 MG
     Route: 042
     Dates: start: 20200225
  8. SIMDAX [Suspect]
     Active Substance: LEVOSIMENDAN
     Dosage: UNK
     Route: 042
     Dates: start: 20200224, end: 20200224
  9. VANCOMYCIN [Concomitant]
     Active Substance: VANCOMYCIN
     Dosage: 500-1000  MG, 2X/DAY
     Route: 042
     Dates: start: 20200224
  10. MERONEM [Suspect]
     Active Substance: MEROPENEM
     Dosage: 1 G, 2X/DAY
     Route: 042
     Dates: start: 20200224
  11. HEPARIN [Concomitant]
     Active Substance: HEPARIN SODIUM
     Dosage: CONTINUOUSLY
     Route: 041
  12. CORDARONE [Suspect]
     Active Substance: AMIODARONE HYDROCHLORIDE
     Dosage: 600-900 MG, SATURATION
     Route: 042
     Dates: start: 20200223
  13. CLEXANE [Concomitant]
     Active Substance: ENOXAPARIN SODIUM
     Dosage: 40 MG IN TOTAL
     Route: 058
     Dates: start: 20200222, end: 20200222
  14. CANCIDAS [Suspect]
     Active Substance: CASPOFUNGIN ACETATE
     Dosage: 1X75 MG
     Route: 042
     Dates: end: 20200225

REACTIONS (2)
  - Myoglobinaemia [Recovering/Resolving]
  - Myoglobin blood increased [Recovering/Resolving]

NARRATIVE: CASE EVENT DATE: 20200222
